FAERS Safety Report 25886017 (Version 2)
Quarter: 2025Q4

REPORT INFORMATION
  Report Type: Report from Study
  Country: US (occurrence: US)
  Receive Date: 20251006
  Receipt Date: 20251208
  Transmission Date: 20260118
  Serious: Yes (Other)
  Sender: NOVARTIS
  Company Number: US-002147023-NVSC2025US125076

PATIENT
  Sex: Male

DRUGS (4)
  1. KESIMPTA [Suspect]
     Active Substance: OFATUMUMAB
     Indication: Multiple sclerosis
     Dosage: 20 MG, ONCE A WEEK FOR 3 WEEKS, SKIP WEEK 4
     Route: 058
     Dates: start: 20250805
  2. KESIMPTA [Suspect]
     Active Substance: OFATUMUMAB
     Dosage: 20 MG, AT WEEK 5 STARTED MONTHLY
     Route: 058
  3. KESIMPTA [Suspect]
     Active Substance: OFATUMUMAB
     Dosage: UNK (2 DOSE)
     Route: 065
  4. KESIMPTA [Suspect]
     Active Substance: OFATUMUMAB
     Dosage: UNK (3 RD DOSE)
     Route: 065

REACTIONS (12)
  - Blindness transient [Unknown]
  - Hypersensitivity [Recovering/Resolving]
  - Pyrexia [Recovered/Resolved]
  - Tremor [Recovering/Resolving]
  - Feeling cold [Recovering/Resolving]
  - Pain [Recovering/Resolving]
  - Poor quality sleep [Unknown]
  - Dysphemia [Unknown]
  - Balance disorder [Unknown]
  - Limb discomfort [Unknown]
  - Stress [Unknown]
  - Hypoaesthesia [Unknown]
